FAERS Safety Report 11507861 (Version 1)
Quarter: 2015Q3

REPORT INFORMATION
  Report Type: Spontaneous
  Country: US (occurrence: US)
  Receive Date: 20150903
  Receipt Date: 20150903
  Transmission Date: 20151125
  Serious: No
  Sender: FDA-Public Use
  Company Number: US-ELI_LILLY_AND_COMPANY-US200910003235

PATIENT
  Age: 69 Year
  Sex: Male

DRUGS (1)
  1. HUMALOG [Suspect]
     Active Substance: INSULIN LISPRO

REACTIONS (5)
  - Nausea [Recovering/Resolving]
  - Urine abnormality [Recovering/Resolving]
  - Urinary tract infection [Recovering/Resolving]
  - Influenza like illness [Recovering/Resolving]
  - Malaise [Recovering/Resolving]

NARRATIVE: CASE EVENT DATE: 200908
